FAERS Safety Report 5529950-X (Version None)
Quarter: 2007Q4

REPORT INFORMATION
  Report Type: 
  Country: None (occurrence: None)
  Receive Date: 20071129
  Receipt Date: 20071120
  Transmission Date: 20080405
  Serious: Yes (Disabling, Other)
  Sender: FDA-Public Use
  Company Number: DE-BOEHRINGER INGELHEIM PHARMACEUTICALS, INC.-2007-DE-06868DE

PATIENT
  Age: 40 Year
  Sex: Male

DRUGS (1)
  1. MOBIC [Suspect]
     Indication: BACK PAIN
     Route: 030

REACTIONS (4)
  - ECZEMA VESICULAR [None]
  - ERECTION INCREASED [None]
  - ERYTHEMA [None]
  - PENILE BLISTER [None]
